FAERS Safety Report 14596493 (Version 2)
Quarter: 2018Q1

REPORT INFORMATION
  Report Type: Spontaneous
  Country: GB (occurrence: GB)
  Receive Date: 20180304
  Receipt Date: 20180308
  Transmission Date: 20180509
  Serious: Yes (Hospitalization, Other)
  Sender: FDA-Public Use
  Company Number: GB-CONCORDIA PHARMACEUTICALS INC.-GSH201802-000695

PATIENT
  Age: 81 Year
  Sex: Female

DRUGS (17)
  1. SODIUM HYALURONATE [Concomitant]
     Active Substance: HYALURONATE SODIUM
  2. LACTULOSE. [Concomitant]
     Active Substance: LACTULOSE
  3. HYDROXOCOBALAMIN [Concomitant]
     Active Substance: HYDROXOCOBALAMIN
  4. CAPSAICIN. [Concomitant]
     Active Substance: CAPSAICIN
  5. PIOGLITAZONE HYDROCHLORIDE. [Concomitant]
     Active Substance: PIOGLITAZONE HYDROCHLORIDE
  6. CARBOMERS [Concomitant]
  7. ATORVASTATIN [Concomitant]
     Active Substance: ATORVASTATIN
  8. RAMIPRIL. [Concomitant]
     Active Substance: RAMIPRIL
  9. ESTRIOL [Concomitant]
     Active Substance: ESTRIOL
  10. SALBUTAMOL [Concomitant]
     Active Substance: ALBUTEROL
  11. GLICLAZIDE [Concomitant]
     Active Substance: GLICLAZIDE
  12. PREDNISOLONE. [Suspect]
     Active Substance: PREDNISOLONE
     Dosage: FOR 5 DAYS
     Route: 048
  13. METFORMIN HYDROCHLORIDE. [Concomitant]
     Active Substance: METFORMIN HYDROCHLORIDE
  14. DULOXETINE. [Concomitant]
     Active Substance: DULOXETINE
  15. PARACETAMOL [Concomitant]
     Active Substance: ACETAMINOPHEN
  16. SYMBICORT [Concomitant]
     Active Substance: BUDESONIDE\FORMOTEROL FUMARATE DIHYDRATE
  17. AMLODIPINE [Concomitant]
     Active Substance: AMLODIPINE BESYLATE

REACTIONS (1)
  - Gastrointestinal haemorrhage [Recovered/Resolved with Sequelae]

NARRATIVE: CASE EVENT DATE: 20171120
